FAERS Safety Report 17940573 (Version 1)
Quarter: 2020Q2

REPORT INFORMATION
  Report Type: Spontaneous
  Country: FR (occurrence: FR)
  Receive Date: 20200625
  Receipt Date: 20200625
  Transmission Date: 20200714
  Serious: Yes (Hospitalization, Other)
  Sender: FDA-Public Use
  Company Number: FR-SA-2020SA154962

PATIENT

DRUGS (10)
  1. ACEBUTOLOL [Concomitant]
     Active Substance: ACEBUTOLOL
     Indication: CORONARY ARTERY DISEASE
     Dosage: UNK
  2. ROSUVASTATIN. [Concomitant]
     Active Substance: ROSUVASTATIN
     Dosage: UNK
  3. PRALUENT [Suspect]
     Active Substance: ALIROCUMAB
     Indication: HYPERCHOLESTEROLAEMIA
     Dosage: UNK
  4. OFLOXACINE [Concomitant]
     Active Substance: OFLOXACIN
     Indication: URINARY TRACT INFECTION
  5. OFLOXACINE [Concomitant]
     Active Substance: OFLOXACIN
     Indication: PROPHYLAXIS URINARY TRACT INFECTION
  6. AMLODIPINE [Concomitant]
     Active Substance: AMLODIPINE BESYLATE
     Dosage: UNK
  7. ASPIRIN PROTECT [Concomitant]
     Active Substance: ASPIRIN
     Indication: CORONARY ARTERY DISEASE
  8. ROSUVASTATIN. [Concomitant]
     Active Substance: ROSUVASTATIN
     Indication: HYPERCHOLESTEROLAEMIA
     Dosage: UNK
  9. AMLODIPINE [Concomitant]
     Active Substance: AMLODIPINE BESYLATE
     Indication: HYPERTENSION
     Dosage: UNK
  10. ACEBUTOLOL [Concomitant]
     Active Substance: ACEBUTOLOL
     Dosage: UNK

REACTIONS (3)
  - Transitional cell carcinoma [Unknown]
  - Urinary bladder polyp [Unknown]
  - Bladder neoplasm surgery [Recovered/Resolved]

NARRATIVE: CASE EVENT DATE: 20191217
